FAERS Safety Report 17277475 (Version 2)
Quarter: 2020Q1

REPORT INFORMATION
  Report Type: Spontaneous
  Country: US (occurrence: US)
  Receive Date: 20200116
  Receipt Date: 20200130
  Transmission Date: 20200409
  Serious: No
  Sender: FDA-Public Use
  Company Number: US-CELGENEUS-USA-20200104292

PATIENT
  Age: 65 Year
  Sex: Female

DRUGS (5)
  1. OTEZLA [Suspect]
     Active Substance: APREMILAST
     Indication: PALMOPLANTAR PUSTULOSIS
  2. SORIATANE [Concomitant]
     Active Substance: ACITRETIN
     Indication: PALMOPLANTAR PUSTULOSIS
     Route: 065
  3. TREMFYA [Concomitant]
     Active Substance: GUSELKUMAB
     Indication: PALMOPLANTAR PUSTULOSIS
     Route: 065
  4. COSENTYX [Concomitant]
     Active Substance: SECUKINUMAB
     Indication: PALMOPLANTAR PUSTULOSIS
     Route: 065
  5. OTEZLA [Suspect]
     Active Substance: APREMILAST
     Indication: PSORIASIS
     Dosage: 60 MILLIGRAM
     Route: 048
     Dates: start: 20191121

REACTIONS (1)
  - Palmoplantar pustulosis [Not Recovered/Not Resolved]

NARRATIVE: CASE EVENT DATE: 20200110
